FAERS Safety Report 4290258-4 (Version None)
Quarter: 2004Q1

REPORT INFORMATION
  Report Type: 
  Country: None (occurrence: None)
  Receive Date: 20040209
  Receipt Date: 20040130
  Transmission Date: 20041129
  Serious: Yes (Other)
  Sender: FDA-Public Use
  Company Number: 2003126804

PATIENT
  Sex: Female
  Weight: 82.5547 kg

DRUGS (15)
  1. NEURONTIN [Suspect]
     Indication: NEUROPATHIC PAIN
     Dosage: 900 MG (DAILY), ORAL
     Route: 048
  2. FENTANYL [Concomitant]
  3. FLUOXETINE HCL [Concomitant]
  4. BUPROPION HYDROCHLORIDE [Concomitant]
  5. FEXOFENADINE HYDROCHLORIDE [Concomitant]
  6. PANTOPRAZOLE (PANTOPRAZOLE) [Concomitant]
  7. OXYCODONE HCL [Concomitant]
  8. CYCLOBENZAPRINE HYDROCHLORIDE [Concomitant]
  9. ROFECOXIB [Concomitant]
  10. TRAZODONE HCL [Concomitant]
  11. MODAFINIL [Concomitant]
  12. DYAZIDE [Concomitant]
  13. ALL OTHER THERAPEUTIC PRODUCTS [Concomitant]
  14. OXYCODONE HCL [Concomitant]
  15. MORPHINE [Concomitant]

REACTIONS (11)
  - ATAXIA [None]
  - CONTUSION [None]
  - DIFFICULTY IN WALKING [None]
  - DIZZINESS [None]
  - DRUG TOXICITY [None]
  - DYSSTASIA [None]
  - FALL [None]
  - FEELING ABNORMAL [None]
  - HEAD INJURY [None]
  - MEMORY IMPAIRMENT [None]
  - MYOCLONUS [None]
